FAERS Safety Report 6924646-1 (Version None)
Quarter: 2010Q3

REPORT INFORMATION
  Report Type: 
  Country: None (occurrence: None)
  Receive Date: 20100816
  Receipt Date: 20100810
  Transmission Date: 20110219
  Serious: Yes (Other)
  Sender: FDA-Public Use
  Company Number: US-ASTRAZENECA-2006UW11832

PATIENT
  Age: 507 Month
  Sex: Female
  Weight: 85.7 kg

DRUGS (40)
  1. SEROQUEL [Suspect]
     Indication: BIPOLAR DISORDER
     Dosage: 200 IN THE MORNING AND 500 AT BEDTIME
     Route: 048
     Dates: start: 20021118
  2. SEROQUEL [Suspect]
     Indication: ANXIETY
     Dosage: 200 IN THE MORNING AND 500 AT BEDTIME
     Route: 048
     Dates: start: 20021118
  3. SEROQUEL [Suspect]
     Indication: DEPRESSION
     Dosage: 200 IN THE MORNING AND 500 AT BEDTIME
     Route: 048
     Dates: start: 20021118
  4. SEROQUEL [Suspect]
     Dosage: DOSE ROUGHLY 700 MG DAILY
     Route: 048
     Dates: start: 20051006
  5. SEROQUEL [Suspect]
     Dosage: DOSE ROUGHLY 700 MG DAILY
     Route: 048
     Dates: start: 20051006
  6. SEROQUEL [Suspect]
     Dosage: DOSE ROUGHLY 700 MG DAILY
     Route: 048
     Dates: start: 20051006
  7. SEROQUEL [Suspect]
     Dosage: 300 MG TO 900 MG
     Route: 048
     Dates: start: 20091103
  8. SEROQUEL [Suspect]
     Dosage: 300 MG TO 900 MG
     Route: 048
     Dates: start: 20091103
  9. SEROQUEL [Suspect]
     Dosage: 300 MG TO 900 MG
     Route: 048
     Dates: start: 20091103
  10. NAVANE [Concomitant]
  11. NAVANE [Concomitant]
     Dates: start: 20060327
  12. RISPERDAL [Concomitant]
  13. RISPERDAL [Concomitant]
     Dates: start: 20051006
  14. XANAX [Concomitant]
  15. XANAX [Concomitant]
     Dates: start: 20071212
  16. TRAZODONE HCL [Concomitant]
  17. TRAZODONE HCL [Concomitant]
     Dosage: 150MG TO 300 MG.
     Dates: start: 20070101
  18. CYMBALTA [Concomitant]
  19. CYMBALTA [Concomitant]
     Dosage: STRENGTH: 30 MG, 60 MG DOSE: 90 MG DAILY
     Dates: start: 20051006
  20. PROTONIX [Concomitant]
     Indication: GASTROOESOPHAGEAL REFLUX DISEASE
     Dates: start: 20051006
  21. FLEXERIL [Concomitant]
     Indication: MUSCLE SPASMS
     Dosage: THREE TIMES A DAY AS REQUIRED, AT BEDTIME
     Route: 048
     Dates: start: 20011029
  22. PROMETHAZINE [Concomitant]
     Dates: start: 20060126
  23. LYRICA [Concomitant]
     Dosage: STRENGTH: 75 MG, 100 MG DOSE: 200 MG TWO TIMES A DAY
     Route: 048
     Dates: start: 20060218
  24. LORAZEPAM [Concomitant]
     Dates: start: 20060218
  25. PREDNISONE [Concomitant]
     Dates: start: 20060218
  26. HYDROXYZINE PAM [Concomitant]
     Dates: start: 20060324
  27. PREMARIN [Concomitant]
     Dates: start: 20060504
  28. SIMVASTATIN [Concomitant]
     Dates: start: 20071205
  29. TRAMADOL HCL [Concomitant]
     Dates: start: 20071205
  30. DEPAKOTE [Concomitant]
     Dates: start: 20071205
  31. DEPAKOTE [Concomitant]
     Dosage: 500 MG TO 1500 MG.
     Dates: start: 20070101
  32. ZOLPIDEM TARTRATE [Concomitant]
     Dates: start: 20071212
  33. TRILEPTAL [Concomitant]
  34. EFFEXOR [Concomitant]
     Dosage: 150 MG 2 IN AM
  35. REMERON [Concomitant]
  36. GEODON [Concomitant]
     Indication: ANXIETY
     Route: 030
     Dates: start: 20070101
  37. GEODON [Concomitant]
     Dosage: 40 MG TO 120 MG.
     Route: 048
     Dates: start: 20070101
  38. ESKALITH [Concomitant]
     Dates: start: 20091103
  39. NEURONTIN [Concomitant]
     Indication: IMPULSIVE BEHAVIOUR
     Route: 048
     Dates: start: 20080101
  40. NEURONTIN [Concomitant]
     Indication: DIABETIC NEUROPATHY
     Route: 048
     Dates: start: 20080101

REACTIONS (4)
  - DIABETES MELLITUS INADEQUATE CONTROL [None]
  - DIABETIC NEUROPATHY [None]
  - NEUROPATHY PERIPHERAL [None]
  - TYPE 1 DIABETES MELLITUS [None]
